FAERS Safety Report 19903409 (Version 1)
Quarter: 2021Q4

REPORT INFORMATION
  Report Type: Spontaneous
  Country: JP (occurrence: JP)
  Receive Date: 20211001
  Receipt Date: 20211001
  Transmission Date: 20220303
  Serious: Yes (Other)
  Sender: FDA-Public Use
  Company Number: JP-ORION CORPORATION ORION PHARMA-ENT 2021-0102

PATIENT
  Age: 83 Year
  Sex: Male

DRUGS (2)
  1. COMTAN [Suspect]
     Active Substance: ENTACAPONE
     Indication: Parkinson^s disease
     Dosage: STRENGTH: 100 MG
     Route: 048
  2. BENSERAZIDE HYDROCHLORIDE\LEVODOPA [Concomitant]
     Active Substance: BENSERAZIDE HYDROCHLORIDE\LEVODOPA
     Route: 065

REACTIONS (2)
  - Parkinson^s disease [Unknown]
  - Wrong technique in product usage process [Unknown]

NARRATIVE: CASE EVENT DATE: 20210826
